FAERS Safety Report 9575247 (Version 2)
Quarter: 2013Q4

REPORT INFORMATION
  Report Type: Report from Study
  Country: JP (occurrence: JP)
  Receive Date: 20131001
  Receipt Date: 20131024
  Transmission Date: 20140711
  Serious: Yes (Other)
  Sender: FDA-Public Use
  Company Number: JP-GLAXOSMITHKLINE-B0925827A

PATIENT
  Age: 69 Year
  Sex: Female
  Weight: 37 kg

DRUGS (4)
  1. VOTRIENT 200MG [Suspect]
     Indication: FIBROMA
     Dosage: 400MG PER DAY
     Route: 048
     Dates: start: 20130408, end: 20130424
  2. VOTRIENT 200MG [Suspect]
     Indication: FIBROMA
     Dosage: 600MG PER DAY
     Route: 048
     Dates: start: 20130425, end: 20130515
  3. VOTRIENT 200MG [Suspect]
     Indication: FIBROMA
     Dosage: 400MG PER DAY
     Route: 048
     Dates: start: 20130517, end: 20130520
  4. LANSOPRAZOLE [Concomitant]
     Indication: PROPHYLAXIS
     Route: 065

REACTIONS (4)
  - Diarrhoea [Recovered/Resolved]
  - White blood cell count decreased [Recovered/Resolved]
  - Malaise [Recovered/Resolved]
  - Vena cava thrombosis [Recovering/Resolving]
